FAERS Safety Report 6560408-5 (Version None)
Quarter: 2010Q1

REPORT INFORMATION
  Report Type: 
  Country: None (occurrence: None)
  Receive Date: 20100129
  Receipt Date: 20090921
  Transmission Date: 20100710
  Serious: No
  Sender: FDA-Public Use
  Company Number: US-ABBOTT-09P-163-0598966-00

PATIENT
  Age: 27 Year
  Sex: Female
  Weight: 58.112 kg

DRUGS (3)
  1. HUMIRA [Suspect]
     Indication: RHEUMATOID ARTHRITIS
     Route: 058
     Dates: start: 20090501
  2. HUMIRA [Suspect]
     Route: 058
     Dates: start: 20090912
  3. IBUPROFEN [Concomitant]
     Indication: PAIN

REACTIONS (2)
  - FURUNCLE [None]
  - NASOPHARYNGITIS [None]
